FAERS Safety Report 21789369 (Version 1)
Quarter: 2022Q4

REPORT INFORMATION
  Report Type: Spontaneous
  Country: JP (occurrence: JP)
  Receive Date: 20221228
  Receipt Date: 20221228
  Transmission Date: 20230112
  Serious: Yes (Other)
  Sender: FDA-Public Use
  Company Number: JP-NOVOPROD-1006261

PATIENT
  Sex: Male

DRUGS (1)
  1. NOVOEIGHT [Suspect]
     Active Substance: ANTIHEMOPHILIC FACTOR, HUMAN RECOMBINANT
     Indication: Product used for unknown indication
     Dosage: UNK
     Route: 042

REACTIONS (7)
  - Diabetes mellitus [Unknown]
  - Heart valve calcification [Unknown]
  - Panic disorder [Unknown]
  - Dyspnoea [Unknown]
  - Palpitations [Unknown]
  - Hypertension [Unknown]
  - Headache [Unknown]
